FAERS Safety Report 14345137 (Version 30)
Quarter: 2020Q4

REPORT INFORMATION
  Report Type: Spontaneous
  Country: CA (occurrence: CA)
  Receive Date: 20180103
  Receipt Date: 20201218
  Transmission Date: 20210113
  Serious: Yes (Hospitalization, Other)
  Sender: FDA-Public Use
  Company Number: CA-CELLTRION INC.-2017CA017384

PATIENT

DRUGS (36)
  1. INFLECTRA [Suspect]
     Active Substance: INFLIXIMAB-DYYB
     Dosage: 400 MG (EVERY 4 WEEKS)
     Route: 042
     Dates: start: 20200623
  2. LOMOTIL [Concomitant]
     Active Substance: ATROPINE SULFATE\DIPHENOXYLATE HYDROCHLORIDE
     Dosage: 0.25 MG, UNK
     Route: 065
  3. VITALUX [Concomitant]
     Active Substance: MINERALS\VITAMINS
     Dosage: UNK, DAILY
     Route: 048
  4. INFLECTRA [Suspect]
     Active Substance: INFLIXIMAB-DYYB
     Dosage: 400 MG EVERY 6 WEEKS
     Route: 042
     Dates: start: 20190226
  5. INFLECTRA [Suspect]
     Active Substance: INFLIXIMAB-DYYB
     Dosage: 400 MG EVERY 8 WEEKS
     Route: 042
     Dates: start: 20191211, end: 20191211
  6. INFLECTRA [Suspect]
     Active Substance: INFLIXIMAB-DYYB
     Dosage: 400 MG (EVERY 4 WEEKS)
     Route: 042
     Dates: start: 20200526
  7. INFLECTRA [Suspect]
     Active Substance: INFLIXIMAB-DYYB
     Dosage: 400 MG (EVERY 4 WEEKS)
     Route: 042
     Dates: start: 20200821
  8. INFLECTRA [Suspect]
     Active Substance: INFLIXIMAB-DYYB
     Dosage: 400 MG (EVERY 4 WEEKS)
     Route: 042
     Dates: start: 20201016
  9. GABAPENTIN. [Concomitant]
     Active Substance: GABAPENTIN
     Dosage: 100MG 3 CAPSULES 3 TIMES DAILY
     Route: 065
  10. INFLECTRA [Suspect]
     Active Substance: INFLIXIMAB-DYYB
     Dosage: 300 MG Q 0, 2, 6 WEEKS, THEN EVERY 8 WEEKS
     Route: 042
     Dates: start: 20171202
  11. INFLECTRA [Suspect]
     Active Substance: INFLIXIMAB-DYYB
     Dosage: 400 MG EVERY 6 WEEKS
     Route: 042
     Dates: start: 20180118, end: 20190916
  12. INFLECTRA [Suspect]
     Active Substance: INFLIXIMAB-DYYB
     Dosage: 400 MG EVERY 6 WEEKS
     Route: 042
     Dates: start: 20180301
  13. INFLECTRA [Suspect]
     Active Substance: INFLIXIMAB-DYYB
     Dosage: 400 MG (EVERY 4 WEEKS)
     Route: 042
     Dates: start: 20200408
  14. IRON [Concomitant]
     Active Substance: IRON
     Dosage: 300 MG, DAILY
     Route: 048
  15. METAMUCIL [Concomitant]
     Active Substance: PLANTAGO SEED
     Dosage: UNK, DAILY
     Route: 065
  16. CREON [Concomitant]
     Active Substance: PANCRELIPASE AMYLASE\PANCRELIPASE LIPASE\PANCRELIPASE PROTEASE
     Dosage: 25 MG, UNK
  17. INFLECTRA [Suspect]
     Active Substance: INFLIXIMAB-DYYB
     Dosage: 400 MG EVERY 6 WEEKS
     Route: 042
     Dates: start: 20181023
  18. INFLECTRA [Suspect]
     Active Substance: INFLIXIMAB-DYYB
     Dosage: 400 MG EVERY 6 WEEKS
     Route: 042
     Dates: start: 20181130
  19. INFLECTRA [Suspect]
     Active Substance: INFLIXIMAB-DYYB
     Dosage: 400 MG (EVERY 4 WEEKS)
     Route: 042
     Dates: start: 20201113
  20. METOPROLOL. [Concomitant]
     Active Substance: METOPROLOL
     Dosage: 50 MG, 0.5 TABLET TWICE DAILY
     Route: 048
  21. REACTINE [Concomitant]
     Dosage: 10 MG, DAILY
     Route: 048
  22. LANTUS [Concomitant]
     Active Substance: INSULIN GLARGINE
     Dosage: 4 UNITS AT BEDTIME
  23. CANDESARTAN. [Concomitant]
     Active Substance: CANDESARTAN
     Dosage: 8 MG, UNK
  24. INFLECTRA [Suspect]
     Active Substance: INFLIXIMAB-DYYB
     Dosage: 400 MG EVERY 6 WEEKS
     Route: 042
     Dates: start: 20190114
  25. INFLECTRA [Suspect]
     Active Substance: INFLIXIMAB-DYYB
     Dosage: 400 MG EVERY 6 WEEKS
     Route: 042
     Dates: start: 20190815
  26. INFLECTRA [Suspect]
     Active Substance: INFLIXIMAB-DYYB
     Dosage: 400 MG (EVERY 4 WEEKS)
     Route: 042
     Dates: start: 20200918
  27. INFLECTRA [Suspect]
     Active Substance: INFLIXIMAB-DYYB
     Dosage: 400 MG EVERY 4 WEEKS
     Route: 042
     Dates: start: 20191016, end: 20191016
  28. INFLECTRA [Suspect]
     Active Substance: INFLIXIMAB-DYYB
     Dosage: 400 MG (EVERY 4 WEEKS)
     Route: 042
     Dates: start: 20200109
  29. INFLECTRA [Suspect]
     Active Substance: INFLIXIMAB-DYYB
     Dosage: 400 MG (EVERY 4 WEEKS)
     Route: 042
     Dates: start: 20201210
  30. INFLECTRA [Suspect]
     Active Substance: INFLIXIMAB-DYYB
     Dosage: 300 MG Q 0, 2, 6 WEEKS, THEN EVERY 8 WEEKS
     Route: 042
     Dates: start: 20171202
  31. VITAMIN B12 [Concomitant]
     Active Substance: CYANOCOBALAMIN
     Dosage: INJECTIONS ONCE EVERY 2 WEEKS
     Route: 065
  32. VITAMIN D [Concomitant]
     Active Substance: VITAMIN D NOS
     Dosage: 2 DROPS DAILY
     Route: 065
  33. TYLENOL EXTRA STRENGTH [Concomitant]
     Active Substance: ACETAMINOPHEN
     Dosage: 500 MG, 2 TABS EVERY 4 HOURS
     Route: 065
  34. INFLECTRA [Suspect]
     Active Substance: INFLIXIMAB-DYYB
     Indication: COLITIS ULCERATIVE
     Dosage: 300 MG Q 0, 2, 6 WEEKS, THEN EVERY 8 WEEKS
     Route: 042
     Dates: start: 20170706, end: 20171207
  35. INFLECTRA [Suspect]
     Active Substance: INFLIXIMAB-DYYB
     Dosage: 300 MG Q 0, 2, 6 WEEKS, THEN EVERY 8 WEEKS
     Route: 042
     Dates: start: 20171012
  36. INFLECTRA [Suspect]
     Active Substance: INFLIXIMAB-DYYB
     Dosage: 400 MG EVERY 6 WEEKS
     Route: 042
     Dates: start: 20180301

REACTIONS (30)
  - Pain in extremity [Unknown]
  - Confusional state [Unknown]
  - Arrhythmia [Unknown]
  - Crohn^s disease [Unknown]
  - Weight decreased [Not Recovered/Not Resolved]
  - Atelectasis [Unknown]
  - Oxygen saturation decreased [Unknown]
  - Blood pressure systolic increased [Unknown]
  - Arthralgia [Unknown]
  - Gait disturbance [Unknown]
  - Off label use [Unknown]
  - Off label use [Unknown]
  - Neck pain [Unknown]
  - Memory impairment [Unknown]
  - Pain [Unknown]
  - Cervical vertebral fracture [Unknown]
  - Polyp [Unknown]
  - Drug level increased [Unknown]
  - Weight increased [Unknown]
  - Head injury [Unknown]
  - Hypotension [Unknown]
  - Large intestine perforation [Unknown]
  - Fall [Unknown]
  - Catheter site inflammation [Unknown]
  - Intentional product use issue [Unknown]
  - Condition aggravated [Not Recovered/Not Resolved]
  - Cataract [Unknown]
  - Catheter site erythema [Unknown]
  - Photophobia [Unknown]
  - Mobility decreased [Not Recovered/Not Resolved]

NARRATIVE: CASE EVENT DATE: 201712
